FAERS Safety Report 10956268 (Version 3)
Quarter: 2015Q2

REPORT INFORMATION
  Report Type: Spontaneous
  Country: IT (occurrence: IT)
  Receive Date: 20150326
  Receipt Date: 20150414
  Transmission Date: 20150821
  Serious: Yes (Life-Threatening)
  Sender: FDA-Public Use
  Company Number: IT-TEVA-549832ACC

PATIENT
  Age: 59 Year
  Sex: Female
  Weight: 78 kg

DRUGS (8)
  1. ALOXI 250 MCG SOLUZIONE INIETTABILE [Concomitant]
     Indication: VOMITING
  2. EMEND [Concomitant]
     Active Substance: APREPITANT
     Indication: PREMEDICATION
     Route: 048
     Dates: start: 20150224, end: 20150224
  3. RANITIDINE [Concomitant]
     Active Substance: RANITIDINE\RANITIDINE HYDROCHLORIDE
     Dates: start: 20150224
  4. VEPESID [Suspect]
     Active Substance: ETOPOSIDE
     Indication: PRODUCT USED FOR UNKNOWN INDICATION
     Dosage: 178 MG CYCLICAL
     Dates: start: 20150224, end: 20150224
  5. SOLDESAM [Concomitant]
     Active Substance: DEXAMETHASONE
     Indication: PREMEDICATION
     Dates: start: 20150224, end: 20150224
  6. EMEND [Concomitant]
     Active Substance: APREPITANT
     Indication: VOMITING
  7. CISPLATIN. [Suspect]
     Active Substance: CISPLATIN
     Indication: PRODUCT USED FOR UNKNOWN INDICATION
     Dosage: 133.5 MG CYCLICAL.
     Route: 042
     Dates: start: 20150224, end: 20150224
  8. ALOXI 250 MCG SOLUZIONE INIETTABILE [Concomitant]
     Indication: PREMEDICATION
     Dates: start: 20150224, end: 20150224

REACTIONS (4)
  - Bronchospasm [Recovered/Resolved]
  - Hypersensitivity [Unknown]
  - Syncope [Recovered/Resolved]
  - Oxygen saturation decreased [Recovered/Resolved]

NARRATIVE: CASE EVENT DATE: 20150224
